FAERS Safety Report 6187187-8 (Version None)
Quarter: 2009Q2

REPORT INFORMATION
  Report Type: 
  Country: None (occurrence: None)
  Receive Date: 20090512
  Receipt Date: 20030827
  Transmission Date: 20091009
  Serious: Yes (Hospitalization)
  Sender: FDA-Public Use
  Company Number: NO-NOVOPROD-232152

PATIENT
  Sex: Female

DRUGS (1)
  1. ACTIVELLE [Suspect]
     Indication: MENOPAUSAL SYMPTOMS
     Dates: start: 20030521, end: 20030703

REACTIONS (1)
  - PULMONARY EMBOLISM [None]
